FAERS Safety Report 8813166 (Version 1)
Quarter: 2012Q4

REPORT INFORMATION
  Report Type: 
  Country: US (occurrence: US)
  Receive Date: 20120927
  Receipt Date: 20120927
  Transmission Date: 20130627
  Serious: No
  Sender: FDA-Public Use
  Company Number: US-AMGEN-USASP2012033942

PATIENT
  Age: 58 Year
  Sex: Female

DRUGS (4)
  1. PROLIA [Suspect]
     Indication: OSTEOPOROSIS POSTMENOPAUSAL
     Dosage: 60 mg, q6wk
     Route: 058
     Dates: start: 20110608, end: 20111208
  2. CALCIUM [Concomitant]
  3. SEROQUEL [Concomitant]
  4. MULTIVITAMIN                       /00097801/ [Concomitant]

REACTIONS (2)
  - Dermatitis [Not Recovered/Not Resolved]
  - Rash [Not Recovered/Not Resolved]
